FAERS Safety Report 12280356 (Version 1)
Quarter: 2016Q2

REPORT INFORMATION
  Report Type: Spontaneous
  Country: CA (occurrence: CA)
  Receive Date: 20160419
  Receipt Date: 20160419
  Transmission Date: 20160815
  Serious: Yes (Other)
  Sender: FDA-Public Use
  Company Number: CA-AMGEN-CANSL2014095177

PATIENT
  Age: 56 Year
  Sex: Male

DRUGS (1)
  1. ENBREL [Suspect]
     Active Substance: ETANERCEPT
     Indication: ANKYLOSING SPONDYLITIS
     Dosage: 50 MG, QWK
     Route: 065
     Dates: start: 20080522

REACTIONS (4)
  - Lower respiratory tract infection [Not Recovered/Not Resolved]
  - Arthropathy [Not Recovered/Not Resolved]
  - Dysphagia [Not Recovered/Not Resolved]
  - Secretion discharge [Not Recovered/Not Resolved]

NARRATIVE: CASE EVENT DATE: 201411
